FAERS Safety Report 13885646 (Version 2)
Quarter: 2017Q3

REPORT INFORMATION
  Report Type: Spontaneous
  Country: US (occurrence: US)
  Receive Date: 20170821
  Receipt Date: 20170911
  Transmission Date: 20171127
  Serious: No
  Sender: FDA-Public Use
  Company Number: US-PFIZER INC-2017360386

PATIENT
  Age: 69 Year
  Sex: Male

DRUGS (11)
  1. LYRICA [Suspect]
     Active Substance: PREGABALIN
     Indication: PAIN
     Dosage: 25 MG, 2X/DAY, ONE AT NIGHT AND ONE IN THE MORNING
  2. LYRICA [Suspect]
     Active Substance: PREGABALIN
     Dosage: 225 MG, DAILY, FIVE IN THE MORNING AND FOUR NIGHT
  3. LYRICA [Suspect]
     Active Substance: PREGABALIN
     Dosage: 150 MG, 2X/DAY, SIX IN THE MORNING AND AT NIGHT
  4. LYRICA [Suspect]
     Active Substance: PREGABALIN
     Indication: HERPES ZOSTER
     Dosage: 25 MG, 1X/DAY
  5. LYRICA [Suspect]
     Active Substance: PREGABALIN
     Dosage: 75 MG, 2X/DAY (THREE 25MG TABLETS IN THE MORNING AND THREE AT NIGHT)
  6. LYRICA [Suspect]
     Active Substance: PREGABALIN
     Dosage: 275 MG, DAILY, SIX IN THE MORNING AND FIVE AT NIGHT
  7. LYRICA [Suspect]
     Active Substance: PREGABALIN
     Dosage: 50 MG, 2X/DAY (TWO 25MG TABLETS IN THE MORNING AND TWO AT NIGHT)
  8. LYRICA [Suspect]
     Active Substance: PREGABALIN
     Dosage: 125 MG, DAILY (THREE 25MG TABLETS IN MORNING AND TWO AT NIGHT)
  9. LYRICA [Suspect]
     Active Substance: PREGABALIN
     Dosage: 100 MG, 2X/DAY (FOUR IN THE MORNING AND FOUR AT NIGHT)
  10. LYRICA [Suspect]
     Active Substance: PREGABALIN
     Dosage: 175 MG, DAILY (FOUR IN THE MORNING AND THREE AT NIGHT)
  11. LYRICA [Suspect]
     Active Substance: PREGABALIN
     Dosage: 125 MG, 2X/DAY, FIVE IN THE MORNING AND NIGHT

REACTIONS (1)
  - Drug ineffective [Not Recovered/Not Resolved]

NARRATIVE: CASE EVENT DATE: 20170101
